FAERS Safety Report 22390151 (Version 1)
Quarter: 2023Q2

REPORT INFORMATION
  Report Type: Spontaneous
  Country: CN (occurrence: CN)
  Receive Date: 20230531
  Receipt Date: 20230531
  Transmission Date: 20230722
  Serious: Yes (Other)
  Sender: FDA-Public Use
  Company Number: CN-PFIZER INC-PV202300094327

PATIENT
  Age: 86 Year
  Sex: Male

DRUGS (10)
  1. VORICONAZOLE [Interacting]
     Active Substance: VORICONAZOLE
     Dosage: LOAD DOSE FOR THE FIRST 24 HOURS
     Route: 048
     Dates: start: 201910, end: 201910
  2. VORICONAZOLE [Interacting]
     Active Substance: VORICONAZOLE
     Dosage: MAINTENANCE DOSE
     Route: 048
     Dates: start: 201910
  3. ATORVASTATIN [Interacting]
     Active Substance: ATORVASTATIN
     Indication: Therapeutic procedure
     Dosage: 20 MG, 1X/DAY
     Route: 048
     Dates: start: 201910, end: 2019
  4. ESOMEPRAZOLE [Interacting]
     Active Substance: ESOMEPRAZOLE
     Indication: Therapeutic procedure
     Dosage: 40 MG, 2X/DAY
     Route: 041
     Dates: start: 2019
  5. PANTOPRAZOLE [Interacting]
     Active Substance: PANTOPRAZOLE
     Indication: Therapeutic procedure
     Dosage: 40 MG, 2X/DAY
     Route: 041
     Dates: start: 201910, end: 2019
  6. RABEPRAZOLE [Interacting]
     Active Substance: RABEPRAZOLE
     Dosage: 20 MG, 1X/DAY
     Route: 048
     Dates: start: 2019, end: 2019
  7. ASPIRIN [Concomitant]
     Active Substance: ASPIRIN
     Indication: Therapeutic procedure
     Dosage: 100 MG, 1X/DAY
     Route: 048
     Dates: start: 201910
  8. CLOPIDOGREL [Concomitant]
     Active Substance: CLOPIDOGREL BISULFATE
     Indication: Therapeutic procedure
     Dosage: 75 MG, 1X/DAY
     Route: 048
     Dates: start: 201910
  9. CEFOPERAZONE SODIUM\SULBACTAM [Concomitant]
     Active Substance: CEFOPERAZONE SODIUM\SULBACTAM
     Indication: Anti-infective therapy
     Dosage: 3 G, 3X/DAY
     Route: 041
     Dates: start: 201910
  10. CASPOFUNGIN [Concomitant]
     Active Substance: CASPOFUNGIN
     Indication: Anti-infective therapy
     Dosage: 50 MG, 1X/DAY
     Route: 041
     Dates: start: 201910

REACTIONS (3)
  - Drug interaction [Recovering/Resolving]
  - Myoglobinaemia [Recovering/Resolving]
  - Myopathy [Recovering/Resolving]
